FAERS Safety Report 7911430-5 (Version None)
Quarter: 2011Q4

REPORT INFORMATION
  Report Type: 
  Country: None (occurrence: None)
  Receive Date: 20111109
  Receipt Date: 20111027
  Transmission Date: 20120403
  Serious: Yes (Hospitalization, Other)
  Sender: FDA-Public Use
  Company Number: 2011MA015650

PATIENT
  Age: 15 Year
  Sex: Female

DRUGS (4)
  1. FEVERALL [Suspect]
     Indication: INTENTIONAL OVERDOSE
     Dosage: 375 MG/KG;X1;PO
     Route: 048
  2. PYRILAMINE MALEATE [Suspect]
     Indication: INTENTIONAL OVERDOSE
     Dosage: 8 MG/KG;X1;PO
     Route: 048
  3. CAFFEINE CITRATE [Suspect]
     Indication: INTENTIONAL OVERDOSE
     Dosage: 32 MG/KG;X1;PO
     Route: 048
  4. IBUPROFEN (ADVIL) [Suspect]
     Indication: INTENTIONAL OVERDOSE
     Dosage: 21 MG/KG;X1;PO
     Route: 048

REACTIONS (11)
  - BLOOD GLUCOSE INCREASED [None]
  - PO2 DECREASED [None]
  - SUICIDE ATTEMPT [None]
  - BLOOD BICARBONATE DECREASED [None]
  - ANXIETY [None]
  - DEPRESSED MOOD [None]
  - HEART RATE INCREASED [None]
  - MULTIPLE DRUG OVERDOSE INTENTIONAL [None]
  - PALPITATIONS [None]
  - CHILLS [None]
  - ELECTROCARDIOGRAM QT PROLONGED [None]
